FAERS Safety Report 6133706-7 (Version None)
Quarter: 2009Q1

REPORT INFORMATION
  Report Type: 
  Country: None (occurrence: None)
  Receive Date: 20090326
  Receipt Date: 20090320
  Transmission Date: 20090719
  Serious: Yes (Other)
  Sender: FDA-Public Use
  Company Number: B0566364A

PATIENT
  Age: 80 Year
  Sex: Female

DRUGS (7)
  1. AMOXICILLIN AND CLAVULANATE POTASSIUM [Suspect]
     Indication: DRUG USE FOR UNKNOWN INDICATION
     Route: 065
     Dates: start: 20071102, end: 20071108
  2. ORAMORPH SR [Suspect]
     Indication: DRUG USE FOR UNKNOWN INDICATION
     Route: 065
     Dates: start: 20071030, end: 20080326
  3. DIFFU K [Concomitant]
     Route: 065
     Dates: start: 20060101
  4. NEURONTIN [Concomitant]
     Dosage: 800MG THREE TIMES PER DAY
     Route: 065
     Dates: start: 20061231
  5. SERESTA [Concomitant]
     Dosage: 5MG PER DAY
     Route: 065
     Dates: start: 20070101
  6. DEPAKENE [Concomitant]
     Dosage: 500MG SIX TIMES PER DAY
     Route: 065
     Dates: start: 20070120
  7. COUMADIN [Concomitant]
     Indication: DEEP VEIN THROMBOSIS
     Route: 065
     Dates: start: 20071102

REACTIONS (4)
  - ASPARTATE AMINOTRANSFERASE INCREASED [None]
  - BLOOD ALKALINE PHOSPHATASE INCREASED [None]
  - CHOLESTASIS [None]
  - GAMMA-GLUTAMYLTRANSFERASE INCREASED [None]
